FAERS Safety Report 11909417 (Version 2)
Quarter: 2016Q2

REPORT INFORMATION
  Report Type: Spontaneous
  Country: US (occurrence: US)
  Receive Date: 20160112
  Receipt Date: 20160407
  Transmission Date: 20160815
  Serious: No
  Sender: FDA-Public Use
  Company Number: US-TEVA-611241USA

PATIENT
  Age: 21 Year
  Sex: Female

DRUGS (1)
  1. ZECUITY [Suspect]
     Active Substance: SUMATRIPTAN SUCCINATE
     Indication: PRODUCT USED FOR UNKNOWN INDICATION
     Dosage: DOSE NOT PROVIDED
     Route: 062
     Dates: start: 20151119

REACTIONS (2)
  - Drug ineffective [Unknown]
  - Device battery issue [Recovered/Resolved]

NARRATIVE: CASE EVENT DATE: 20151119
